FAERS Safety Report 18617689 (Version 4)
Quarter: 2021Q1

REPORT INFORMATION
  Report Type: Spontaneous
  Country: US (occurrence: US)
  Receive Date: 20201215
  Receipt Date: 20210114
  Transmission Date: 20210419
  Serious: No
  Sender: FDA-Public Use
  Company Number: US-AMGEN-USASP2020200483

PATIENT
  Age: 59 Year
  Sex: Male
  Weight: 85.36 kg

DRUGS (10)
  1. ALBUTEROL [SALBUTAMOL] [Concomitant]
     Active Substance: ALBUTEROL
     Dosage: UNK
  2. ASPIRIN [ACETYLSALICYLIC ACID] [Concomitant]
     Active Substance: ASPIRIN
     Dosage: 81 MILLIGRAM
  3. SPIRIVA [Concomitant]
     Active Substance: TIOTROPIUM BROMIDE MONOHYDRATE
     Dosage: 2.5 MICROGRAM
  4. OTEZLA [Suspect]
     Active Substance: APREMILAST
     Indication: PSORIASIS
     Dosage: 30 MILLIGRAM, BID
     Route: 048
     Dates: start: 20200519, end: 202011
  5. MUPIROCIN. [Concomitant]
     Active Substance: MUPIROCIN
     Dosage: 2 PERCENT
  6. HYDROCODONE/ACETAMINOPHEN [Concomitant]
     Active Substance: ACETAMINOPHEN\HYDROCODONE
     Dosage: 5?325 MILLIGRAM
  7. KENALOG [SALICYLIC ACID;TRIAMCINOLONE ACETONIDE] [Concomitant]
     Active Substance: SALICYLIC ACID\TRIAMCINOLONE ACETONIDE
     Dosage: 40 MILLIGRAM PER MILLILITRE
  8. PANTOPRAZOLE [Concomitant]
     Active Substance: PANTOPRAZOLE
     Dosage: 40 MILLIGRAM
  9. OTEZLA [Suspect]
     Active Substance: APREMILAST
     Dosage: 30 MILLIGRAM, BID
     Route: 048
     Dates: start: 20210106
  10. BACLOFEN. [Concomitant]
     Active Substance: BACLOFEN
     Dosage: 10 MILLIGRAM

REACTIONS (3)
  - COVID-19 [Recovered/Resolved]
  - Psoriasis [Recovering/Resolving]
  - Product supply issue [Unknown]

NARRATIVE: CASE EVENT DATE: 202010
